FAERS Safety Report 22388845 (Version 2)
Quarter: 2023Q2

REPORT INFORMATION
  Report Type: Report from Study
  Country: US (occurrence: US)
  Receive Date: 20230531
  Receipt Date: 20230605
  Transmission Date: 20230722
  Serious: Yes (Other)
  Sender: FDA-Public Use
  Company Number: US-GILEAD-2023-0629921

PATIENT
  Age: 3 Year
  Sex: Female

DRUGS (3)
  1. AZTREONAM LYSINE [Suspect]
     Active Substance: AZTREONAM LYSINE
     Indication: Respiratory disorder
     Dosage: 75 MG, TID, INHALED FOR 28 DAYS ON AND 28 DAYS OFF
     Route: 055
     Dates: start: 202204
  2. AZTREONAM LYSINE [Suspect]
     Active Substance: AZTREONAM LYSINE
     Indication: Bacterial infection
  3. VANCOMYCIN [Concomitant]
     Active Substance: VANCOMYCIN
     Indication: Clostridium difficile infection
     Dosage: UNKNOWN

REACTIONS (3)
  - Clostridium difficile infection [Unknown]
  - Off label use [Unknown]
  - Product dose omission issue [Unknown]
